FAERS Safety Report 10729570 (Version 1)
Quarter: 2015Q1

REPORT INFORMATION
  Report Type: Spontaneous
  Country: US (occurrence: None)
  Receive Date: 20150121
  Receipt Date: 20150121
  Transmission Date: 20150721
  Serious: Yes (Disabling)
  Sender: FDA-Public Use
  Company Number: None

PATIENT
  Age: 41 Year
  Sex: Female
  Weight: 62 kg

DRUGS (1)
  1. TOPAMAX [Suspect]
     Active Substance: TOPIRAMATE
     Indication: EPILEPSY
     Dosage: 1, ORAL
     Route: 048

REACTIONS (3)
  - Atrophic vulvovaginitis [None]
  - Dysuria [None]
  - Dyspareunia [None]

NARRATIVE: CASE EVENT DATE: 20150101
